FAERS Safety Report 5528821-2 (Version None)
Quarter: 2007Q4

REPORT INFORMATION
  Report Type: 
  Country: None (occurrence: None)
  Receive Date: 20071114
  Receipt Date: 20070212
  Transmission Date: 20080405
  Serious: Yes (Other)
  Sender: FDA-Public Use
  Company Number: US-2007-005056

PATIENT
  Age: 56 Year
  Sex: Female
  Weight: 68 kg

DRUGS (4)
  1. ULTRAVIST (PHARMACY BULK) [Suspect]
     Indication: COMPUTERISED TOMOGRAM
     Dosage: 100 ML, 1 DOSE, INTRAVENOUS
     Route: 042
     Dates: start: 20070212, end: 20070212
  2. PREDNISONE [Concomitant]
  3. ESTRADIOL [Concomitant]
  4. BENADRYL ^PFIZER WARNER-LAMBERT^ (DIPHENHYDRAMINE HYDROCHLORIDE) [Concomitant]

REACTIONS (11)
  - BLOOD PRESSURE SYSTOLIC INCREASED [None]
  - CHILLS [None]
  - DIZZINESS [None]
  - DYSPNOEA [None]
  - ERYTHEMA [None]
  - HEADACHE [None]
  - HEART RATE INCREASED [None]
  - MALAISE [None]
  - PRURITUS [None]
  - TREMOR [None]
  - URTICARIA [None]
